FAERS Safety Report 5066924-X (Version None)
Quarter: 2006Q3

REPORT INFORMATION
  Report Type: 
  Country: None (occurrence: None)
  Receive Date: 20060726
  Receipt Date: 20060718
  Transmission Date: 20061208
  Serious: Yes (Hospitalization)
  Sender: FDA-Public Use
  Company Number: 2006-145517-NL

PATIENT
  Age: 84 Year
  Sex: Female

DRUGS (3)
  1. DANAPAROID SODIUM [Suspect]
     Dosage: DF, INTRAVENOUS (NOS)
     Route: 042
     Dates: start: 20060519, end: 20060530
  2. AMOXICILLIN [Suspect]
     Dosage: DF, INTRAVENOUS (NOS)
     Route: 042
     Dates: start: 20060515, end: 20060526
  3. ESOMEPRAZOLE MAGNESIUM [Suspect]
     Dosage: DF
     Dates: start: 20060515, end: 20060604

REACTIONS (2)
  - HAEMATOMA [None]
  - THROMBOCYTOPENIA [None]
